FAERS Safety Report 7137513-8 (Version None)
Quarter: 2010Q4

REPORT INFORMATION
  Report Type: 
  Country: None (occurrence: None)
  Receive Date: 20101119
  Receipt Date: 20101109
  Transmission Date: 20110411
  Serious: Yes (Hospitalization)
  Sender: FDA-Public Use
  Company Number: 021875

PATIENT
  Sex: Male
  Weight: 15 kg

DRUGS (3)
  1. KEPPRA [Suspect]
     Indication: CONVULSION
     Dosage: (100 MG BID ORAL), (200 MG BID ORAL), (250 MG BID ORAL)
     Route: 048
     Dates: start: 20091117, end: 20100115
  2. DEPAKINE CHRONOSPHERE [Concomitant]
  3. TOPAMAX [Concomitant]

REACTIONS (2)
  - EXTRAPYRAMIDAL DISORDER [None]
  - MYOCLONUS [None]
